FAERS Safety Report 9878293 (Version 1)
Quarter: 2014Q1

REPORT INFORMATION
  Report Type: Report from Study
  Country: US (occurrence: US)
  Receive Date: 20140206
  Receipt Date: 20140206
  Transmission Date: 20141002
  Serious: Yes (Hospitalization)
  Sender: FDA-Public Use
  Company Number: US-ACTELION-A-US2014-94271

PATIENT
  Age: 73 Year
  Sex: Female

DRUGS (3)
  1. TRACLEER [Suspect]
     Indication: COR PULMONALE CHRONIC
     Dosage: UNK
     Route: 048
  2. TRACLEER [Suspect]
     Indication: COR PULMONALE CHRONIC
  3. SILDENAFIL [Concomitant]

REACTIONS (1)
  - Gallbladder operation [Unknown]
